FAERS Safety Report 12914052 (Version 1)
Quarter: 2016Q4

REPORT INFORMATION
  Report Type: Spontaneous
  Country: GB (occurrence: GB)
  Receive Date: 20161105
  Receipt Date: 20161105
  Transmission Date: 20170207
  Serious: Yes (Hospitalization)
  Sender: FDA-Public Use
  Company Number: GB-ACCORD-045252

PATIENT
  Age: 62 Year
  Sex: Female

DRUGS (10)
  1. CALCICHEW D3 [Concomitant]
     Active Substance: CALCIUM\CHOLECALCIFEROL
  2. FOLIC ACID. [Concomitant]
     Active Substance: FOLIC ACID
     Dosage: ON 6 DAYS PER WEEK
  3. LANSOPRAZOLE. [Concomitant]
     Active Substance: LANSOPRAZOLE
  4. LEVOTHYROXINE. [Concomitant]
     Active Substance: LEVOTHYROXINE
  5. GABAPENTIN. [Concomitant]
     Active Substance: GABAPENTIN
  6. SERTRALINE [Concomitant]
     Active Substance: SERTRALINE HYDROCHLORIDE
  7. PARACETAMOL [Concomitant]
     Active Substance: ACETAMINOPHEN
     Dosage: FOUR TIMES A DAY
  8. METHOTREXATE. [Suspect]
     Active Substance: METHOTREXATE
     Indication: POLYMYALGIA RHEUMATICA
     Dosage: STARTED AT THE DOSE OF 10 MG WEEKLY FROM JUL-2016?THEN DOSE INCREASED TO TO 25MG ONCE A WEEK
     Route: 058
     Dates: end: 20161006
  9. CYCLIZINE [Concomitant]
     Active Substance: CYCLIZINE
  10. DHC-CONTINUS [Concomitant]
     Active Substance: DIHYDROCODEINE BITARTRATE

REACTIONS (5)
  - Acute kidney injury [Unknown]
  - Vomiting [Recovered/Resolved]
  - Dehydration [Unknown]
  - Abnormal loss of weight [Unknown]
  - Abdominal pain [Recovered/Resolved]
